FAERS Safety Report 8979366 (Version 1)
Quarter: 2012Q4

REPORT INFORMATION
  Report Type: Report from Study
  Country: DE (occurrence: DE)
  Receive Date: 20121221
  Receipt Date: 20121221
  Transmission Date: 20130627
  Serious: Yes (Hospitalization)
  Sender: FDA-Public Use
  Company Number: DE-ELI_LILLY_AND_COMPANY-DE201212006370

PATIENT
  Age: 83 Year
  Sex: Female
  Weight: 61 kg

DRUGS (7)
  1. PEMETREXED [Suspect]
     Indication: NON-SMALL CELL LUNG CANCER
     Dosage: 622 mg, 1 in 3 weeks
     Route: 042
     Dates: start: 20110208, end: 20110310
  2. BEVACIZUMAB [Suspect]
     Indication: NON-SMALL CELL LUNG CANCER
     Dosage: 457 mg, 1 in 3 weeks
     Route: 042
     Dates: start: 20110208, end: 20110310
  3. ASS [Concomitant]
     Dosage: 100 mg, UNK
     Dates: start: 1998
  4. BELOC-ZOC MITE [Concomitant]
     Dosage: 23.75 mg, UNK
     Dates: start: 1990
  5. MOLSIHEXAL [Concomitant]
     Dosage: 8 mg, UNK
     Dates: start: 1990
  6. ALLOPURINOL [Concomitant]
     Dosage: 300 mg, UNK
     Dates: start: 1980
  7. HALDOL [Concomitant]
     Dosage: UNK, prn
     Dates: start: 20110301

REACTIONS (1)
  - General physical health deterioration [Recovered/Resolved]
